FAERS Safety Report 19200706 (Version 1)
Quarter: 2021Q2

REPORT INFORMATION
  Report Type: Spontaneous
  Country: GB (occurrence: GB)
  Receive Date: 20210430
  Receipt Date: 20210430
  Transmission Date: 20210717
  Serious: Yes (Other)
  Sender: FDA-Public Use
  Company Number: GB-MICRO LABS LIMITED-ML2021-01230

PATIENT
  Age: 78 Year
  Sex: Male
  Weight: 76.2 kg

DRUGS (6)
  1. SITAGLIPTIN [Suspect]
     Active Substance: SITAGLIPTIN
     Indication: DIABETES MELLITUS
     Route: 048
  2. METFORMIN [Suspect]
     Active Substance: METFORMIN HYDROCHLORIDE
     Indication: DIABETES MELLITUS
     Route: 048
  3. SASTRAVI [Suspect]
     Active Substance: CARBIDOPA\ENTACAPONE\LEVODOPA
     Indication: PARKINSON^S DISEASE
     Route: 048
     Dates: start: 2015
  4. ATORVASTATIN [Suspect]
     Active Substance: ATORVASTATIN
     Indication: DIABETES MELLITUS
     Route: 048
  5. NEDITOL [Suspect]
     Active Substance: TOLTERODINE
     Indication: HYPERTONIC BLADDER
     Route: 048
  6. HUMAN INSULATARD [Suspect]
     Active Substance: INSULIN HUMAN
     Indication: DIABETES MELLITUS
     Route: 051

REACTIONS (4)
  - Confusional state [Recovered/Resolved]
  - Somnolence [Recovered/Resolved]
  - Gait inability [Recovered/Resolved]
  - Fall [Unknown]

NARRATIVE: CASE EVENT DATE: 20210117
